FAERS Safety Report 4580751-9 (Version None)
Quarter: 2005Q1

REPORT INFORMATION
  Report Type: 
  Country: None (occurrence: None)
  Receive Date: 20050214
  Receipt Date: 20040526
  Transmission Date: 20050727
  Serious: No
  Sender: FDA-Public Use
  Company Number: US-GLAXOSMITHKLINE-A0512215A

PATIENT
  Age: 18 Year
  Sex: Male

DRUGS (6)
  1. LAMICTAL [Suspect]
     Indication: ILL-DEFINED DISORDER
     Route: 048
  2. LITHIUM [Concomitant]
  3. CLONOPIN [Concomitant]
     Dosage: 2MG FOUR TIMES PER DAY
  4. DILANTIN [Concomitant]
     Dosage: 250MG TWICE PER DAY
  5. DEPAKOTE [Concomitant]
  6. NEURONTIN [Concomitant]
     Dosage: 800MG TWICE PER DAY

REACTIONS (3)
  - ABDOMINAL PAIN UPPER [None]
  - SOMNOLENCE [None]
  - TREMOR [None]
